FAERS Safety Report 4569328-9 (Version None)
Quarter: 2005Q1

REPORT INFORMATION
  Report Type: 
  Country: None (occurrence: None)
  Receive Date: 20050203
  Receipt Date: 20040910
  Transmission Date: 20050727
  Serious: Yes (Other)
  Sender: FDA-Public Use
  Company Number: CA-GLAXOSMITHKLINE-A0525351A

PATIENT
  Age: 39 Year
  Sex: Female
  Weight: 60 kg

DRUGS (4)
  1. PAXIL [Suspect]
     Indication: PANIC REACTION
     Dosage: 20MG PER DAY
     Route: 048
     Dates: start: 19950901
  2. ZOLOFT [Suspect]
     Indication: PANIC REACTION
     Dosage: 50MG PER DAY
     Route: 048
     Dates: start: 20040301, end: 20040701
  3. EFFEXOR [Suspect]
     Indication: PANIC REACTION
     Dosage: 75MG PER DAY
     Route: 048
     Dates: start: 20040701, end: 20040901
  4. DIURETIC [Concomitant]
     Indication: HYPERKALAEMIA

REACTIONS (2)
  - BLOOD POTASSIUM INCREASED [None]
  - HYPERNATRAEMIA [None]
